FAERS Safety Report 4418380-X (Version None)
Quarter: 2004Q3

REPORT INFORMATION
  Report Type: 
  Country: None (occurrence: None)
  Receive Date: 20040809
  Receipt Date: 20040408
  Transmission Date: 20050211
  Serious: No
  Sender: FDA-Public Use
  Company Number: US-GLAXOSMITHKLINE-A0506383A

PATIENT
  Age: 80 Year
  Sex: Female

DRUGS (4)
  1. PAXIL CR [Suspect]
     Indication: DEPRESSION
     Dosage: 25.5MG PER DAY
     Route: 048
     Dates: start: 20040404, end: 20040408
  2. ULTRAM [Concomitant]
  3. LISINOPRIL [Concomitant]
  4. HYDROCHLOROTHIAZIDE [Concomitant]

REACTIONS (3)
  - ANXIETY [None]
  - CRYING [None]
  - DRUG INEFFECTIVE [None]
